FAERS Safety Report 4684825-3 (Version None)
Quarter: 2005Q2

REPORT INFORMATION
  Report Type: 
  Country: None (occurrence: None)
  Receive Date: 20050531
  Receipt Date: 20050118
  Transmission Date: 20051028
  Serious: Yes (Other)
  Sender: FDA-Public Use
  Company Number: USA041286854

PATIENT
  Age: 82 Year
  Sex: Female

DRUGS (8)
  1. ZYPREXA [Suspect]
     Indication: DEPRESSION
     Dosage: 5 MG DAY
     Dates: start: 20041217
  2. DULOXETINE [Concomitant]
  3. STALEVO 100 [Concomitant]
  4. DIAZEPAM [Concomitant]
  5. PROTONIX [Concomitant]
  6. TRUSOPT [Concomitant]
  7. ZILEUTON [Concomitant]
  8. ALPHAGAN [Concomitant]

REACTIONS (6)
  - CONVULSION [None]
  - DISORIENTATION [None]
  - DRUG INTERACTION [None]
  - DYSPNOEA [None]
  - ERYTHEMA [None]
  - PANIC ATTACK [None]
